FAERS Safety Report 4666992-0 (Version None)
Quarter: 2005Q2

REPORT INFORMATION
  Report Type: 
  Country: None (occurrence: None)
  Receive Date: 20050518
  Receipt Date: 20040512
  Transmission Date: 20051028
  Serious: Yes (Other)
  Sender: FDA-Public Use
  Company Number: PHEH2004US05308

PATIENT
  Sex: Female

DRUGS (1)
  1. TEGRETOL-XR [Suspect]

REACTIONS (1)
  - HYPOTENSION [None]
